FAERS Safety Report 4269892-3 (Version None)
Quarter: 2004Q1

REPORT INFORMATION
  Report Type: 
  Country: None (occurrence: None)
  Receive Date: 20040112
  Receipt Date: 20040112
  Transmission Date: 20041129
  Serious: Yes (Hospitalization)
  Sender: FDA-Public Use
  Company Number: None

PATIENT
  Age: 68 Year
  Sex: Male

DRUGS (14)
  1. DIGOXIN [Suspect]
     Indication: CARDIAC FAILURE CONGESTIVE
     Dosage: 0.125 MG QD
     Dates: start: 20030301
  2. DILTIAZEM [Suspect]
     Indication: HYPERTENSION
     Dosage: 180 MG QD
     Dates: start: 20000401
  3. LOVENOX [Concomitant]
  4. GLYBURINE [Concomitant]
  5. KCL TAB [Concomitant]
  6. ZOCOR [Concomitant]
  7. ACIPHEX [Concomitant]
  8. SOTALOL HCL [Concomitant]
  9. WARFARIN SODIUM [Concomitant]
  10. TAMSULOSIN [Concomitant]
  11. AMITRIPTYLINE HCL [Concomitant]
  12. OSCAL [Concomitant]
  13. HYDROCHLOROTHIAZIDE [Concomitant]
  14. LISINOPRIL [Concomitant]

REACTIONS (3)
  - ATRIOVENTRICULAR BLOCK FIRST DEGREE [None]
  - DIZZINESS [None]
  - HYPOTENSION [None]
